FAERS Safety Report 4273132-9 (Version None)
Quarter: 2004Q1

REPORT INFORMATION
  Report Type: 
  Country: None (occurrence: None)
  Receive Date: 20040116
  Receipt Date: 20031113
  Transmission Date: 20041129
  Serious: Yes (Death)
  Sender: FDA-Public Use
  Company Number: CH-GLAXOSMITHKLINE-B0314993A

PATIENT
  Age: 86 Year
  Sex: Female
  Weight: 74 kg

DRUGS (5)
  1. AUGMENTIN [Suspect]
     Indication: VARICOSE ULCERATION
     Route: 048
     Dates: start: 20031010, end: 20031010
  2. TORSEMIDE [Concomitant]
     Indication: CORONARY ARTERY DISEASE
     Dosage: 10MG PER DAY
     Dates: end: 20031025
  3. METOPROLOL [Concomitant]
     Indication: CORONARY ARTERY DISEASE
     Dosage: 50MG PER DAY
     Dates: end: 20031025
  4. ASPIRIN [Concomitant]
     Indication: CORONARY ARTERY DISEASE
     Dosage: 100MG PER DAY
     Dates: end: 20031025
  5. INSULIN [Concomitant]
     Indication: DIABETES MELLITUS NON-INSULIN-DEPENDENT
     Dosage: 38U PER DAY
     Dates: start: 19960101, end: 20031025

REACTIONS (7)
  - BLOOD PRESSURE INCREASED [None]
  - DYSPNOEA [None]
  - EXANTHEM [None]
  - RASH MACULO-PAPULAR [None]
  - RESPIRATORY FAILURE [None]
  - SHOCK [None]
  - TOXIC EPIDERMAL NECROLYSIS [None]
